FAERS Safety Report 17022211 (Version 1)
Quarter: 2019Q4

REPORT INFORMATION
  Report Type: Spontaneous
  Country: US (occurrence: US)
  Receive Date: 20191008
  Receipt Date: 20191008
  Transmission Date: 20200122
  Serious: No
  Sender: FDA-Public Use
  Company Number: None

PATIENT
  Age: 63 Year
  Sex: Female

DRUGS (1)
  1. IBRANCE [Suspect]
     Active Substance: PALBOCICLIB
     Route: 048
     Dates: start: 201908

REACTIONS (6)
  - Fatigue [None]
  - Swelling [None]
  - Hot flush [None]
  - Bone pain [None]
  - Chills [None]
  - White blood cell count decreased [None]

NARRATIVE: CASE EVENT DATE: 20190814
